FAERS Safety Report 6543404-3 (Version None)
Quarter: 2010Q1

REPORT INFORMATION
  Report Type: 
  Country: None (occurrence: None)
  Receive Date: 20100120
  Receipt Date: 20100112
  Transmission Date: 20100710
  Serious: Yes (Hospitalization, Other)
  Sender: FDA-Public Use
  Company Number: US-JNJFOC-20100104030

PATIENT
  Age: 15 Year
  Sex: Female
  Weight: 33.7 kg

DRUGS (14)
  1. REMICADE [Suspect]
     Indication: JUVENILE ARTHRITIS
     Route: 042
  2. REMICADE [Suspect]
     Route: 042
  3. REMICADE [Suspect]
     Route: 042
  4. METHOTREXATE [Concomitant]
     Route: 058
  5. METHOTREXATE [Concomitant]
     Route: 058
  6. PRED FORTE [Concomitant]
     Dosage: R EYE; FOR 2 TO 3 YEARS
     Route: 047
  7. PRED FORTE [Concomitant]
     Dosage: L EYE EVERY OTHER DAY; FOR 2 TO 3 YEARS
     Route: 047
  8. CELLUVISC [Concomitant]
     Dosage: EACH EYE; FOR 2 TO 3 YEARS
     Route: 047
  9. PRILOSEC [Concomitant]
     Dosage: VIA G-TUBE; FOR 2 TO 3 YEARS
  10. CARAFATE [Concomitant]
     Dosage: VIA G-TUBE; FOR 2 TO 3 YEARS
  11. ELAVIL [Concomitant]
     Dosage: VIA G-TUBE; FOR 2 TO 3 YEARS
  12. CLARITIN [Concomitant]
     Dosage: VIA G-TUBE; FOR 2 TO 3 YEARS
  13. TOPAMAX [Concomitant]
     Dosage: VIA G-TUBE; FOR 2 TO 3 YEARS
  14. CYCLOGYL [Concomitant]
     Dosage: L THIGH; FOR 2 TO 3 YEARS

REACTIONS (6)
  - CYCLIC VOMITING SYNDROME [None]
  - PNEUMONIA ASPIRATION [None]
  - SUPRAVENTRICULAR TACHYCARDIA [None]
  - TRANSAMINASES INCREASED [None]
  - UPPER RESPIRATORY TRACT INFECTION [None]
  - VIRAL INFECTION [None]
